FAERS Safety Report 23105191 (Version 1)
Quarter: 2023Q4

REPORT INFORMATION
  Report Type: Spontaneous
  Country: US (occurrence: None)
  Receive Date: 20231023
  Receipt Date: 20231023
  Transmission Date: 20240109
  Serious: Yes (Life-Threatening, Hospitalization)
  Sender: FDA-Public Use
  Company Number: None

PATIENT
  Age: 81 Year
  Sex: Male

DRUGS (3)
  1. DABIGATRAN ETEXILATE [Suspect]
     Active Substance: DABIGATRAN ETEXILATE
     Dosage: FREQUENCY : TWICE A DAY;?
     Route: 048
     Dates: start: 20150326, end: 20230405
  2. ASPIRIN [Suspect]
     Active Substance: ASPIRIN
     Dosage: FREQUENCY : DAILY;?
     Route: 048
     Dates: end: 20230405
  3. PRADAXA [Suspect]
     Active Substance: DABIGATRAN ETEXILATE MESYLATE

REACTIONS (12)
  - Haemorrhage [None]
  - Gastrointestinal haemorrhage [None]
  - Shock haemorrhagic [None]
  - Blood loss anaemia [None]
  - Ischaemic hepatitis [None]
  - Acute kidney injury [None]
  - Wound [None]
  - Acute myocardial infarction [None]
  - Atrial fibrillation [None]
  - Overdose [None]
  - Arthralgia [None]
  - Diabetes mellitus [None]

NARRATIVE: CASE EVENT DATE: 20230405
